FAERS Safety Report 8532206-4 (Version None)
Quarter: 2012Q3

REPORT INFORMATION
  Report Type: 
  Country: None (occurrence: None)
  Receive Date: 20120723
  Receipt Date: 20120719
  Transmission Date: 20120928
  Serious: Yes (Life-Threatening)
  Sender: FDA-Public Use
  Company Number: US-ROCHE-1004165

PATIENT
  Age: 50 Year
  Sex: Male
  Weight: 77.3 kg

DRUGS (8)
  1. GDC-0980 (PI3K/MTOR INHIBITOR) [Suspect]
     Indication: NEOPLASM MALIGNANT
     Dosage: CYCLE 1
     Route: 048
     Dates: start: 20110722, end: 20110803
  2. GDC-0980 (PI3K/MTOR INHIBITOR) [Suspect]
     Dosage: CYCLE 3
     Route: 048
     Dates: start: 20110906, end: 20110919
  3. COMPAZINE [Concomitant]
     Indication: NAUSEA
  4. IMODIUM [Concomitant]
     Indication: DIARRHOEA
  5. GDC-0980 (PI3K/MTOR INHIBITOR) [Suspect]
     Dosage: CYCLE 2
     Route: 048
     Dates: start: 20110816, end: 20110829
  6. SIMVASTATIN [Suspect]
  7. GDC-0980 (PI3K/MTOR INHIBITOR) [Suspect]
     Dosage: CYCLE 4
     Route: 048
     Dates: start: 20110927, end: 20111010
  8. XELODA [Suspect]
     Indication: NEOPLASM MALIGNANT
     Route: 048
     Dates: start: 20110721, end: 20111010

REACTIONS (1)
  - LARGE INTESTINE PERFORATION [None]
